FAERS Safety Report 15170529 (Version 2)
Quarter: 2018Q3

REPORT INFORMATION
  Report Type: Spontaneous
  Country: FR (occurrence: FR)
  Receive Date: 20180720
  Receipt Date: 20180725
  Transmission Date: 20181010
  Serious: Yes (Disabling, Other)
  Sender: FDA-Public Use
  Company Number: FR-ASTRAZENECA-2018SE79850

PATIENT
  Age: 24120 Day
  Sex: Female
  Weight: 35 kg

DRUGS (8)
  1. SOLUPRED [Concomitant]
     Dosage: 40 OR 35 /DAY
     Dates: start: 20180315
  2. CISPLATIN. [Concomitant]
     Active Substance: CISPLATIN
  3. GEMZAR [Concomitant]
     Active Substance: GEMCITABINE HYDROCHLORIDE
  4. IRESSA [Suspect]
     Active Substance: GEFITINIB
     Route: 048
  5. VIMPAT [Concomitant]
     Active Substance: LACOSAMIDE
     Dosage: LOW DOSE 25 TWICE DAILY
     Dates: start: 2016
  6. NIVOLUMAB [Concomitant]
     Active Substance: NIVOLUMAB
  7. TAGRISSO [Suspect]
     Active Substance: OSIMERTINIB
     Indication: LUNG CARCINOMA CELL TYPE UNSPECIFIED STAGE IV
     Route: 048
     Dates: start: 20180315
  8. TARCEVA [Concomitant]
     Active Substance: ERLOTINIB HYDROCHLORIDE

REACTIONS (4)
  - Hypersomnia [Unknown]
  - Asthenia [Unknown]
  - Somnolence [Not Recovered/Not Resolved]
  - Anaemia [Unknown]

NARRATIVE: CASE EVENT DATE: 20180610
